FAERS Safety Report 7898051-8 (Version None)
Quarter: 2011Q4

REPORT INFORMATION
  Report Type: 
  Country: None (occurrence: None)
  Receive Date: 20111107
  Receipt Date: 20111107
  Transmission Date: 20120403
  Serious: Yes (Other)
  Sender: FDA-Public Use
  Company Number: None

PATIENT
  Age: 71 Year
  Sex: Female
  Weight: 108.86 kg

DRUGS (1)
  1. ROPINIROLE [Suspect]
     Indication: DRUG THERAPY CHANGED
     Dosage: 1 TO 2 TABLETS
     Route: 048
     Dates: start: 20111105, end: 20111106

REACTIONS (1)
  - HALLUCINATION [None]
